FAERS Safety Report 9730109 (Version 1)
Quarter: 2013Q4

REPORT INFORMATION
  Report Type: Report from Study
  Country: US (occurrence: US)
  Receive Date: 20131204
  Receipt Date: 20131204
  Transmission Date: 20140711
  Serious: Yes (Death, Other)
  Sender: FDA-Public Use
  Company Number: US-BAXTER-2013BAX047323

PATIENT
  Sex: 0

DRUGS (1)
  1. OSMITROL INJECTION (MANNITOL INJECTION, USP) [Suspect]
     Indication: PROPHYLAXIS
     Dosage: 1 G/KG
     Route: 042

REACTIONS (2)
  - Death [Fatal]
  - Hypotension [Unknown]
